FAERS Safety Report 11964766 (Version 1)
Quarter: 2016Q1

REPORT INFORMATION
  Report Type: Report from Study
  Country: US (occurrence: US)
  Receive Date: 20160127
  Receipt Date: 20160127
  Transmission Date: 20160526
  Serious: Yes (Hospitalization, Other)
  Sender: FDA-Public Use
  Company Number: US-ASTRAZENECA-2015SE55291

PATIENT
  Age: 21046 Day
  Sex: Female
  Weight: 86.2 kg

DRUGS (3)
  1. CRESTOR [Suspect]
     Active Substance: ROSUVASTATIN CALCIUM
     Indication: BLOOD CHOLESTEROL INCREASED
     Route: 048
     Dates: start: 201308
  2. CRESTOR [Suspect]
     Active Substance: ROSUVASTATIN CALCIUM
     Indication: CARDIAC DISORDER
     Route: 048
     Dates: start: 201308
  3. NEXIUM [Suspect]
     Active Substance: ESOMEPRAZOLE MAGNESIUM
     Indication: GASTROOESOPHAGEAL REFLUX DISEASE
     Route: 048
     Dates: start: 201303

REACTIONS (5)
  - Hypoaesthesia [Unknown]
  - Hypopnoea [Unknown]
  - Cerebrovascular accident [Unknown]
  - Gait disturbance [Unknown]
  - Visual acuity reduced [Unknown]

NARRATIVE: CASE EVENT DATE: 20150321
